FAERS Safety Report 13065588 (Version 1)
Quarter: 2016Q4

REPORT INFORMATION
  Report Type: Spontaneous
  Country: PL (occurrence: PL)
  Receive Date: 20161227
  Receipt Date: 20161227
  Transmission Date: 20170207
  Serious: Yes (Other)
  Sender: FDA-Public Use
  Company Number: PL-SYNTHON BV-NL01PV16_42765

PATIENT
  Age: 39 Year
  Sex: Male

DRUGS (1)
  1. FOKUSIN [Suspect]
     Active Substance: TAMSULOSIN
     Indication: BENIGN PROSTATIC HYPERPLASIA
     Dosage: 0.4 MG, DAILY
     Route: 048
     Dates: start: 20161204, end: 20161213

REACTIONS (2)
  - Nocturia [Unknown]
  - Atrial fibrillation [Unknown]
